FAERS Safety Report 4598953-4 (Version None)
Quarter: 2005Q1

REPORT INFORMATION
  Report Type: 
  Country: None (occurrence: None)
  Receive Date: 20050302
  Receipt Date: 20050214
  Transmission Date: 20050727
  Serious: Yes (Death)
  Sender: FDA-Public Use
  Company Number: 2005BI003371

PATIENT
  Age: 49 Year
  Sex: Female
  Weight: 92.9874 kg

DRUGS (2)
  1. AMEVIVE [Suspect]
     Indication: PSORIASIS
     Dosage: SEE IMAGE
     Route: 042
     Dates: end: 20040120
  2. AMEVIVE [Suspect]
     Indication: PSORIASIS
     Dosage: SEE IMAGE
     Route: 042
     Dates: start: 20030721

REACTIONS (13)
  - ANAEMIA [None]
  - ASCITES [None]
  - DIVERTICULUM INTESTINAL [None]
  - DYSPNOEA [None]
  - FATIGUE [None]
  - GASTRIC VARICES [None]
  - GASTROINTESTINAL HAEMORRHAGE [None]
  - GENERALISED OEDEMA [None]
  - HAEMORRHOIDS [None]
  - HEPATIC FAILURE [None]
  - LIVER DISORDER [None]
  - POLYP [None]
  - RESPIRATORY RATE INCREASED [None]
